FAERS Safety Report 4578586-6 (Version None)
Quarter: 2005Q1

REPORT INFORMATION
  Report Type: 
  Country: None (occurrence: None)
  Receive Date: 20050209
  Receipt Date: 20050209
  Transmission Date: 20050727
  Serious: Yes (Death)
  Sender: FDA-Public Use
  Company Number: None

PATIENT
  Age: 46 Year
  Sex: Male
  Weight: 86 kg

DRUGS (3)
  1. TAXOTERE [Suspect]
     Indication: GASTRIC CANCER
     Dosage: 30          IV
     Route: 042
     Dates: start: 20041104, end: 20050110
  2. CISPLATIN [Suspect]
     Indication: GASTRIC CANCER
     Dosage: 25        IV
     Route: 042
     Dates: start: 20041104, end: 20050110
  3. CPT-11 (MG/M2) DAYS 1 AND 8 OF 21 DAY CYCLE [Suspect]
     Indication: GASTRIC CANCER
     Dosage: 50        IV
     Route: 042
     Dates: start: 20041104, end: 20050110

REACTIONS (3)
  - DISEASE PROGRESSION [None]
  - GENERAL PHYSICAL HEALTH DETERIORATION [None]
  - METASTASES TO MENINGES [None]
